FAERS Safety Report 5195910-4 (Version None)
Quarter: 2007Q1

REPORT INFORMATION
  Report Type: 
  Country: None (occurrence: None)
  Receive Date: 20070102
  Receipt Date: 20061221
  Transmission Date: 20070707
  Serious: Yes (Hospitalization)
  Sender: FDA-Public Use
  Company Number: JP-MERCK-0610USA03039

PATIENT
  Age: 89 Year
  Sex: Male
  Weight: 62 kg

DRUGS (9)
  1. COZAAR [Suspect]
     Indication: HYPERTENSION
     Route: 048
     Dates: start: 20051219, end: 20060905
  2. COZAAR [Suspect]
     Route: 048
     Dates: start: 20001130, end: 20001214
  3. COZAAR [Suspect]
     Route: 048
     Dates: start: 20001215, end: 20010408
  4. COZAAR [Suspect]
     Route: 048
     Dates: start: 20010409, end: 20051218
  5. NITOROL-R [Concomitant]
     Route: 048
     Dates: start: 20040618
  6. PEPCID [Concomitant]
     Route: 048
     Dates: start: 20051219
  7. TRANCOLON [Concomitant]
     Route: 048
     Dates: start: 20030318
  8. LAC-B [Concomitant]
     Route: 048
     Dates: start: 20030318
  9. ZOCOR [Concomitant]
     Route: 048
     Dates: start: 20011116

REACTIONS (1)
  - RHABDOMYOLYSIS [None]
